FAERS Safety Report 23565841 (Version 2)
Quarter: 2024Q1

REPORT INFORMATION
  Report Type: Spontaneous
  Country: AT (occurrence: AT)
  Receive Date: 20240226
  Receipt Date: 20240304
  Transmission Date: 20240410
  Serious: Yes (Other)
  Sender: FDA-Public Use
  Company Number: AT-009507513-2402AUT003721

PATIENT
  Age: 81 Year
  Sex: Female

DRUGS (3)
  1. PACLITAXEL [Suspect]
     Active Substance: PACLITAXEL
     Indication: Cervix carcinoma recurrent
     Dosage: 175 MILLIGRAM/SQ. METER, Q3W, 175 MG/M2 BODY SURFACE AREA (BSA)
     Route: 065
  2. CARBOPLATIN [Suspect]
     Active Substance: CARBOPLATIN
     Indication: Cervix carcinoma recurrent
     Dosage: Q3W (AUC5)
     Route: 065
  3. PEMBROLIZUMAB [Suspect]
     Active Substance: PEMBROLIZUMAB
     Indication: Cervix carcinoma recurrent
     Dosage: 200 MILLIGRAM, Q3W
     Route: 065

REACTIONS (1)
  - Polyneuropathy in malignant disease [Unknown]
